FAERS Safety Report 6793207-X (Version None)
Quarter: 2010Q2

REPORT INFORMATION
  Report Type: 
  Country: None (occurrence: None)
  Receive Date: 20100624
  Receipt Date: 20090806
  Transmission Date: 20101027
  Serious: Yes (Other)
  Sender: FDA-Public Use
  Company Number: US-MYLANLABS-2009S1014022

PATIENT
  Age: 47 Year
  Sex: Female

DRUGS (3)
  1. CLOZAPINE [Suspect]
     Indication: SCHIZOPHRENIA
     Route: 048
     Dates: start: 20070801
  2. CLOZAPINE [Suspect]
     Route: 048
     Dates: start: 20090401, end: 20090401
  3. CLOZAPINE [Suspect]
     Route: 048
     Dates: start: 20090716, end: 20090806

REACTIONS (3)
  - DRUG EFFECT DECREASED [None]
  - HALLUCINATION [None]
  - PSYCHOTIC DISORDER [None]
